FAERS Safety Report 24689761 (Version 1)
Quarter: 2024Q4

REPORT INFORMATION
  Report Type: Spontaneous
  Country: KR (occurrence: KR)
  Receive Date: 20241203
  Receipt Date: 20241203
  Transmission Date: 20250115
  Serious: Yes (Other)
  Sender: BOEHRINGER INGELHEIM
  Company Number: KR-BoehringerIngelheim-2024-BI-066241

PATIENT
  Age: 93 Year
  Sex: Male
  Weight: 62 kg

DRUGS (1)
  1. SPIRIVA RESPIMAT [Suspect]
     Active Substance: TIOTROPIUM BROMIDE
     Indication: Evidence based treatment
     Dosage: UNIT DOSE: 2 DOSAGE FORM
     Route: 055
     Dates: start: 20221101, end: 20221101

REACTIONS (2)
  - Epidermolysis [Recovered/Resolved]
  - Pruritus [Recovered/Resolved]

NARRATIVE: CASE EVENT DATE: 20221101
